FAERS Safety Report 6444929-1 (Version None)
Quarter: 2009Q4

REPORT INFORMATION
  Report Type: 
  Country: None (occurrence: None)
  Receive Date: 20091118
  Receipt Date: 20090722
  Transmission Date: 20100525
  Serious: Yes (Death)
  Sender: FDA-Public Use
  Company Number: PHHY2009US30255

PATIENT
  Age: 12 Year
  Sex: Male
  Weight: 47.6 kg

DRUGS (1)
  1. METHYLPHENIDATE HCL [Suspect]
     Indication: ATTENTION DEFICIT/HYPERACTIVITY DISORDER
     Dosage: THREE TIMES IN A DAY

REACTIONS (2)
  - ARRHYTHMIA [None]
  - SUDDEN DEATH [None]
